FAERS Safety Report 6773438-5 (Version None)
Quarter: 2010Q2

REPORT INFORMATION
  Report Type: 
  Country: None (occurrence: None)
  Receive Date: 20100611
  Receipt Date: 20100527
  Transmission Date: 20101027
  Serious: Yes (Hospitalization)
  Sender: FDA-Public Use
  Company Number: 2010AM002273

PATIENT
  Age: 57 Year
  Sex: Female
  Weight: 72.5755 kg

DRUGS (12)
  1. SYMLIN [Suspect]
     Indication: TYPE 2 DIABETES MELLITUS
     Dosage: 60 MCG; BID; SC, 45 MCG; BID; SC, 30 MCG; BID; SC
     Route: 058
     Dates: start: 20100101, end: 20100101
  2. SYMLIN [Suspect]
     Indication: TYPE 2 DIABETES MELLITUS
     Dosage: 60 MCG; BID; SC, 45 MCG; BID; SC, 30 MCG; BID; SC
     Route: 058
     Dates: start: 20100301, end: 20100101
  3. SYMLIN [Suspect]
     Indication: TYPE 2 DIABETES MELLITUS
     Dosage: 60 MCG; BID; SC, 45 MCG; BID; SC, 30 MCG; BID; SC
     Route: 058
     Dates: start: 20100101
  4. LANTUS [Concomitant]
  5. HUMALOG [Concomitant]
  6. SPIRIVA [Concomitant]
  7. STOOL SOFTENER [Concomitant]
  8. FISH OIL [Concomitant]
  9. POTASSIUM [Concomitant]
  10. ADVAIR DISKUS 100/50 [Concomitant]
  11. OXYGEN [Concomitant]
  12. CHEMOTHERAPY [Concomitant]

REACTIONS (4)
  - FUNGAL INFECTION [None]
  - PLATELET COUNT DECREASED [None]
  - PNEUMONIA [None]
  - RESPIRATORY FAILURE [None]
